FAERS Safety Report 6364289-4 (Version None)
Quarter: 2009Q3

REPORT INFORMATION
  Report Type: 
  Country: None (occurrence: None)
  Receive Date: 20090919
  Receipt Date: 20090721
  Transmission Date: 20100115
  Serious: No
  Sender: FDA-Public Use
  Company Number: US-ABBOTT-09P-163-0586768-00

PATIENT
  Sex: Female

DRUGS (3)
  1. HUMIRA [Suspect]
     Indication: CROHN'S DISEASE
     Dates: start: 20090706
  2. DILANTIN [Concomitant]
     Indication: CONVULSION
  3. SCORCET [Concomitant]
     Indication: MIGRAINE

REACTIONS (2)
  - INJECTION SITE PAIN [None]
  - MIGRAINE [None]
